FAERS Safety Report 14961191 (Version 12)
Quarter: 2019Q3

REPORT INFORMATION
  Report Type: Report from Study
  Country: FR (occurrence: FR)
  Receive Date: 20180601
  Receipt Date: 20190920
  Transmission Date: 20191004
  Serious: Yes (Death, Life-Threatening, Hospitalization, Other)
  Sender: FDA-Public Use
  Company Number: FR-TEVA-2018-FR-900113

PATIENT
  Age: 59 Year
  Sex: Male
  Weight: 81 kg

DRUGS (3)
  1. FLUOROURACIL. [Suspect]
     Active Substance: FLUOROURACIL
     Indication: PANCREATIC NEUROENDOCRINE TUMOUR
     Dosage: 550 MG/M2, UNK
     Route: 065
     Dates: end: 20160820
  2. ADRIAMYCIN [Suspect]
     Active Substance: DOXORUBICIN HYDROCHLORIDE
     Indication: PANCREATIC NEUROENDOCRINE TUMOUR
     Dosage: 550 MG/M2, UNK
     Route: 065
     Dates: start: 20160408, end: 20160820
  3. ZANOSAR [Suspect]
     Active Substance: STREPTOZOCIN
     Indication: PANCREATIC NEUROENDOCRINE TUMOUR
     Dosage: DOSAGE FORM: UNKNOWN
     Route: 065
     Dates: start: 20160408, end: 20160820

REACTIONS (4)
  - Femoral neck fracture [Fatal]
  - Off label use [Unknown]
  - Lung disorder [Unknown]
  - Cardiac failure [Recovered/Resolved]

NARRATIVE: CASE EVENT DATE: 20160408
